FAERS Safety Report 5443368-X (Version None)
Quarter: 2007Q3

REPORT INFORMATION
  Report Type: 
  Country: None (occurrence: None)
  Receive Date: 20070831
  Receipt Date: 20070831
  Transmission Date: 20080115
  Serious: No
  Sender: FDA-Public Use
  Company Number: None

PATIENT
  Sex: Male
  Weight: 13.3 kg

DRUGS (2)
  1. CAMPTOSAR [Suspect]
     Dosage: 295 MG
  2. TEMOZOLOMIDE [Suspect]
     Dosage: 300 MG

REACTIONS (6)
  - BACK PAIN [None]
  - BLOOD ALKALINE PHOSPHATASE DECREASED [None]
  - INCORRECT DOSE ADMINISTERED [None]
  - MEDICATION ERROR [None]
  - NEUROBLASTOMA [None]
  - PROTEIN TOTAL DECREASED [None]
